FAERS Safety Report 7897471-5 (Version None)
Quarter: 2011Q4

REPORT INFORMATION
  Report Type: 
  Country: None (occurrence: None)
  Receive Date: 20111107
  Receipt Date: 20111029
  Transmission Date: 20120403
  Serious: Yes (Other)
  Sender: FDA-Public Use
  Company Number: TR-JNJFOC-20111012916

PATIENT
  Age: 22 Year
  Sex: Male

DRUGS (6)
  1. BARBEXACLONE [Suspect]
     Indication: EPILEPSY
     Route: 065
  2. CARBAMAZEPINE [Suspect]
     Indication: EPILEPSY
     Route: 065
  3. CARBAMAZEPINE [Suspect]
     Route: 065
  4. TOPIRAMATE [Suspect]
     Indication: EPILEPSY
     Route: 065
  5. TOPIRAMATE [Suspect]
     Route: 065
  6. BARBEXACLONE [Suspect]
     Route: 065

REACTIONS (2)
  - STATUS EPILEPTICUS [None]
  - INAPPROPRIATE SCHEDULE OF DRUG ADMINISTRATION [None]
